FAERS Safety Report 4957415-2 (Version None)
Quarter: 2006Q1

REPORT INFORMATION
  Report Type: 
  Country: None (occurrence: None)
  Receive Date: 20060327
  Receipt Date: 20060308
  Transmission Date: 20060701
  Serious: Yes (Life-Threatening)
  Sender: FDA-Public Use
  Company Number: 2006BH004754

PATIENT
  Sex: Male

DRUGS (6)
  1. DEXTRAN 40 10% IN SODIUM CHLORIDE 0.9% [Suspect]
     Indication: ARTERIAL BYPASS OPERATION
     Dosage: 3 ML; ONCE; IV
     Route: 042
     Dates: start: 20060307, end: 20060307
  2. LISINOPRIL [Concomitant]
  3. NORVASC [Concomitant]
  4. DIAZIDE [Concomitant]
  5. ZYTORIN [Concomitant]
  6. NEXIUM [Concomitant]

REACTIONS (5)
  - ANAPHYLACTIC REACTION [None]
  - BLOOD PRESSURE DECREASED [None]
  - CARDIAC ARREST [None]
  - PULSE ABSENT [None]
  - ULTRASOUND DOPPLER ABNORMAL [None]
